FAERS Safety Report 5505258-3 (Version None)
Quarter: 2007Q4

REPORT INFORMATION
  Report Type: 
  Country: None (occurrence: None)
  Receive Date: 20071031
  Receipt Date: 20071016
  Transmission Date: 20080405
  Serious: Yes (Hospitalization)
  Sender: FDA-Public Use
  Company Number: 162887ISR

PATIENT
  Age: 63 Year
  Sex: Female

DRUGS (10)
  1. SIMVASTATIN [Suspect]
     Dosage: 20 MG (20 MG, 1 IN 1 D)
     Dates: start: 20070321
  2. OMEPRAZOLE MAGNESIUM [Suspect]
     Dosage: 20 MG (20 MG, 1 IN 1 D)
     Dates: start: 19981209
  3. METFORMIN HYDROCHLORIDE [Concomitant]
  4. FUROSEMIDE [Concomitant]
  5. VALSARTAN [Concomitant]
  6. BROMAZEPAM [Concomitant]
  7. TEMAZEPAM [Concomitant]
  8. TEMAZEPAM [Concomitant]
  9. LATANOPROST [Concomitant]
  10. ATROPINE SULFATE [Concomitant]

REACTIONS (1)
  - RETINAL DETACHMENT [None]
